FAERS Safety Report 8368880-5 (Version None)
Quarter: 2012Q2

REPORT INFORMATION
  Report Type: 
  Country: None (occurrence: None)
  Receive Date: 20120518
  Receipt Date: 20120514
  Transmission Date: 20120825
  Serious: Yes (Other)
  Sender: FDA-Public Use
  Company Number: PL-ACCORD-013511

PATIENT
  Age: 59 Year
  Sex: Female

DRUGS (2)
  1. GEMCITABINE [Suspect]
     Indication: NEURILEMMOMA
     Dates: start: 20090101
  2. DOCETAXEL [Suspect]
     Indication: NEURILEMMOMA
     Dates: start: 20090101

REACTIONS (2)
  - OFF LABEL USE [None]
  - PANCYTOPENIA [None]
